FAERS Safety Report 6360008-6 (Version None)
Quarter: 2009Q3

REPORT INFORMATION
  Report Type: 
  Country: None (occurrence: None)
  Receive Date: 20090917
  Receipt Date: 20090903
  Transmission Date: 20100115
  Serious: Yes (Other)
  Sender: FDA-Public Use
  Company Number: TW-ROCHE-654198

PATIENT
  Age: 22 Year
  Sex: Female
  Weight: 47 kg

DRUGS (6)
  1. TAMIFLU [Suspect]
     Indication: INFLUENZA
     Route: 048
     Dates: start: 20090831, end: 20090903
  2. TAMIFLU [Suspect]
     Route: 048
     Dates: start: 20090904, end: 20090906
  3. PROCHLORPERAZINE [Suspect]
     Indication: VOMITING
     Dosage: DRUG: NOVAMIN
     Route: 048
     Dates: start: 20090831, end: 20090903
  4. CATAFLAM [Concomitant]
     Indication: PALLIATIVE CARE
  5. MEDICON-A [Concomitant]
     Indication: PALLIATIVE CARE
  6. MUBROXOL [Concomitant]
     Indication: PALLIATIVE CARE
     Dosage: DRUG: AMBROXOL HCL

REACTIONS (2)
  - DYSTONIA [None]
  - VISION BLURRED [None]
